FAERS Safety Report 24410144 (Version 1)
Quarter: 2024Q4

REPORT INFORMATION
  Report Type: Spontaneous
  Country: US (occurrence: US)
  Receive Date: 20241008
  Receipt Date: 20241008
  Transmission Date: 20250114
  Serious: No
  Sender: CHANGZHOU PHARMACEUTICAL FACTORY
  Company Number: US-Changzhou Pharmaceutical Factory-2162629

PATIENT
  Sex: Female

DRUGS (1)
  1. ROSUVASTATIN CALCIUM [Suspect]
     Active Substance: ROSUVASTATIN CALCIUM
     Indication: Product used for unknown indication

REACTIONS (4)
  - Adverse drug reaction [Not Recovered/Not Resolved]
  - Malaise [Not Recovered/Not Resolved]
  - Anxiety [Not Recovered/Not Resolved]
  - Fear [Not Recovered/Not Resolved]
